FAERS Safety Report 18593471 (Version 1)
Quarter: 2020Q4

REPORT INFORMATION
  Report Type: Report from Study
  Country: US (occurrence: US)
  Receive Date: 20201208
  Receipt Date: 20201208
  Transmission Date: 20210114
  Serious: Yes (Hospitalization, Other)
  Sender: FDA-Public Use
  Company Number: US-BRISTOL-MYERS SQUIBB COMPANY-BMS-2019-038635

PATIENT
  Age: 56 Year
  Sex: Male
  Weight: 77.1 kg

DRUGS (4)
  1. BENZONATATE. [Concomitant]
     Active Substance: BENZONATATE
     Indication: PRODUCT USED FOR UNKNOWN INDICATION
     Dosage: UNK
     Route: 065
  2. OXYCODONE [Concomitant]
     Active Substance: OXYCODONE
     Indication: PRODUCT USED FOR UNKNOWN INDICATION
     Dosage: UNK
     Route: 065
  3. EGANELISIB. [Suspect]
     Active Substance: EGANELISIB
     Indication: OROPHARYNGEAL SQUAMOUS CELL CARCINOMA
     Dosage: 30 MILLIGRAM, QD
     Route: 048
     Dates: start: 20170309, end: 20190404
  4. NIVOLUMAB [Suspect]
     Active Substance: NIVOLUMAB
     Indication: OROPHARYNGEAL SQUAMOUS CELL CARCINOMA
     Dosage: 240 MILLIGRAM, Q2WK
     Route: 042
     Dates: start: 20170309, end: 20190401

REACTIONS (2)
  - Joint effusion [Recovered/Resolved]
  - Pneumothorax [Recovered/Resolved]

NARRATIVE: CASE EVENT DATE: 20190325
